FAERS Safety Report 18311916 (Version 1)
Quarter: 2020Q3

REPORT INFORMATION
  Report Type: Spontaneous
  Country: US (occurrence: US)
  Receive Date: 20200924
  Receipt Date: 20200924
  Transmission Date: 20201103
  Serious: Yes (Hospitalization)
  Sender: FDA-Public Use
  Company Number: None

PATIENT
  Age: 31 Year
  Sex: Female

DRUGS (2)
  1. OMEPRAZOLE (OMEPRAZOLE 40MG CAP, EC) [Suspect]
     Active Substance: OMEPRAZOLE
  2. LANSOPRAZOLE (LANSOPRAZOLE 15MG CAP, EC) [Suspect]
     Active Substance: LANSOPRAZOLE
     Indication: GASTRIC PH DECREASED

REACTIONS (1)
  - Tubulointerstitial nephritis [None]

NARRATIVE: CASE EVENT DATE: 20191023
